FAERS Safety Report 8560549-7 (Version None)
Quarter: 2012Q2

REPORT INFORMATION
  Report Type: 
  Country: None (occurrence: None)
  Receive Date: 20120418
  Receipt Date: 20090324
  Transmission Date: 20120825
  Serious: Yes (Other)
  Sender: FDA-Public Use
  Company Number: PHEH2009US02850

PATIENT
  Sex: Male

DRUGS (1)
  1. ELIDEL [Suspect]
     Indication: DERMATITIS
     Dates: start: 20090211

REACTIONS (3)
  - DYSPHAGIA [None]
  - APPLICATION SITE IRRITATION [None]
  - PHARYNGEAL OEDEMA [None]
